FAERS Safety Report 9844804 (Version 1)
Quarter: 2014Q1

REPORT INFORMATION
  Report Type: Spontaneous
  Country: GR (occurrence: None)
  Receive Date: 20140122
  Receipt Date: 20140122
  Transmission Date: 20141002
  Serious: Yes (Other)
  Sender: FDA-Public Use
  Company Number: 2014000001

PATIENT
  Age: 69 Year
  Sex: Male

DRUGS (5)
  1. ACEON (PERINDOPRIL ERBUMINE) TABLET [Suspect]
     Indication: PRODUCT USED FOR UNKNOWN INDICATION
  2. MEFENAMIC ACID [Suspect]
     Indication: PRODUCT USED FOR UNKNOWN INDICATION
     Dates: start: 20140103
  3. RANITIDINE HYDROCHLORIDE (RANITIDINE HYDROCHLORIDE) [Concomitant]
  4. LEXOTANIL (BROMAZEPAM) [Concomitant]
  5. RYTMONOM (PROPAFENONE HYDROCHLORIDE) [Concomitant]

REACTIONS (2)
  - Blood pressure increased [None]
  - Drug interaction [None]
